FAERS Safety Report 7010203-8 (Version None)
Quarter: 2010Q3

REPORT INFORMATION
  Report Type: 
  Country: None (occurrence: None)
  Receive Date: 20100923
  Receipt Date: 20100119
  Transmission Date: 20110219
  Serious: No
  Sender: FDA-Public Use
  Company Number: US-BAUSCH-2010BL000310

PATIENT
  Age: 39 Year
  Sex: Female

DRUGS (3)
  1. ERYTHROCIN 1% [Suspect]
     Indication: EYE INFECTION
     Route: 047
     Dates: start: 20100114
  2. ERYTHROCIN 1% [Suspect]
     Indication: BLEPHARITIS
     Route: 047
     Dates: start: 20100114
  3. ZYRTEC [Concomitant]
     Indication: HYPERSENSITIVITY
     Route: 048

REACTIONS (3)
  - EYELID OEDEMA [None]
  - FOREIGN BODY SENSATION IN EYES [None]
  - OCULAR DISCOMFORT [None]
